FAERS Safety Report 6731956-X (Version None)
Quarter: 2010Q2

REPORT INFORMATION
  Report Type: 
  Country: None (occurrence: None)
  Receive Date: 20100519
  Receipt Date: 20100510
  Transmission Date: 20101027
  Serious: Yes (Other)
  Sender: FDA-Public Use
  Company Number: US-AMGEN-QUU409632

PATIENT
  Sex: Male
  Weight: 90 kg

DRUGS (11)
  1. NPLATE [Suspect]
     Indication: IDIOPATHIC THROMBOCYTOPENIC PURPURA
     Route: 058
     Dates: start: 20091124, end: 20100430
  2. PREDNISONE [Concomitant]
     Dates: start: 20091116
  3. PRILOSEC [Concomitant]
     Dates: start: 20091211
  4. NORCO [Concomitant]
     Dates: start: 20091211
  5. AMBIEN [Concomitant]
     Dates: start: 20091211
  6. SENOKOT [Concomitant]
     Dates: start: 20091212
  7. VITAMIN B6 [Concomitant]
     Dates: start: 20100212
  8. FOLIC ACID [Concomitant]
  9. MULTI-VITAMINS [Concomitant]
  10. LACTULOSE [Concomitant]
     Dates: start: 20091211, end: 20091228
  11. CIPRO [Concomitant]
     Dates: start: 20091222, end: 20100104

REACTIONS (11)
  - ARTHRALGIA [None]
  - CHILLS [None]
  - GINGIVAL BLEEDING [None]
  - JOINT SWELLING [None]
  - MALAISE [None]
  - NIGHT SWEATS [None]
  - PETECHIAE [None]
  - PLATELET COUNT ABNORMAL [None]
  - SKIN WARM [None]
  - UPPER RESPIRATORY TRACT INFECTION [None]
  - URTICARIA [None]
